FAERS Safety Report 5999687-1 (Version None)
Quarter: 2008Q4

REPORT INFORMATION
  Report Type: 
  Country: None (occurrence: None)
  Receive Date: 20081211
  Receipt Date: 20081211
  Transmission Date: 20090506
  Serious: Yes (Other)
  Sender: FDA-Public Use
  Company Number: None

PATIENT
  Age: 45 Year
  Sex: Female

DRUGS (1)
  1. PACLITAXEL [Suspect]
     Indication: OVARIAN CANCER
     Dosage: 280 MG Q 3 WEEKS IV
     Route: 042
     Dates: start: 20081002

REACTIONS (4)
  - DYSPNOEA [None]
  - FLUSHING [None]
  - HYPOXIA [None]
  - INFUSION RELATED REACTION [None]
